FAERS Safety Report 16174003 (Version 1)
Quarter: 2019Q2

REPORT INFORMATION
  Report Type: Spontaneous
  Country: DE (occurrence: DE)
  Receive Date: 20190409
  Receipt Date: 20190409
  Transmission Date: 20190711
  Serious: Yes (Hospitalization, Other)
  Sender: FDA-Public Use
  Company Number: DE-009507513-1904DEU003305

PATIENT
  Age: 60 Year
  Sex: Female

DRUGS (1)
  1. PEMBROLIZUMAB. [Suspect]
     Active Substance: PEMBROLIZUMAB
     Indication: NON-SMALL CELL LUNG CANCER
     Dosage: UNK
     Dates: start: 20190201

REACTIONS (12)
  - Peritonitis [Unknown]
  - Renal infarct [Unknown]
  - Diarrhoea [Unknown]
  - Intra-abdominal fluid collection [Unknown]
  - Splenic infarction [Unknown]
  - Abdominal discomfort [Unknown]
  - Autoimmune colitis [Unknown]
  - Infection [Unknown]
  - Malignant peritoneal neoplasm [Unknown]
  - Blood urine present [Unknown]
  - Peritoneal neoplasm [Unknown]
  - Dysuria [Unknown]

NARRATIVE: CASE EVENT DATE: 20190206
